FAERS Safety Report 6166304-X (Version None)
Quarter: 2009Q2

REPORT INFORMATION
  Report Type: 
  Country: None (occurrence: None)
  Receive Date: 20090422
  Receipt Date: 20090422
  Transmission Date: 20091009
  Serious: Yes (Other)
  Sender: FDA-Public Use
  Company Number: None

PATIENT
  Age: 44 Year
  Sex: Female
  Weight: 56.6996 kg

DRUGS (1)
  1. CEPHALEXIN [Suspect]
     Indication: SINUSITIS
     Dosage: ONE 4 PER DAY PO
     Route: 048
     Dates: start: 20090414, end: 20090418

REACTIONS (5)
  - CONDITION AGGRAVATED [None]
  - DIZZINESS [None]
  - HEADACHE [None]
  - LETHARGY [None]
  - SINUSITIS [None]
